FAERS Safety Report 22706519 (Version 7)
Quarter: 2024Q1

REPORT INFORMATION
  Report Type: Spontaneous
  Country: US (occurrence: US)
  Receive Date: 20230714
  Receipt Date: 20240212
  Transmission Date: 20240410
  Serious: Yes (Death)
  Sender: FDA-Public Use
  Company Number: US-PFIZER INC-PV202300120802

PATIENT
  Age: 93 Year
  Sex: Female
  Weight: 53.98 kg

DRUGS (3)
  1. IBRANCE [Suspect]
     Active Substance: PALBOCICLIB
     Indication: Malignant nipple neoplasm female
     Dosage: 1 TAB DAILY FOR 21 DAYS
     Route: 048
     Dates: start: 20230620
  2. IBRANCE [Suspect]
     Active Substance: PALBOCICLIB
     Indication: Breast cancer
     Dosage: 1 TAB DAILY FOR 21 DAYS
     Route: 048
     Dates: start: 20230905
  3. IBRANCE [Suspect]
     Active Substance: PALBOCICLIB
     Dosage: ONCE A DAY FOR 21 DAYS, SKIPS A WEEK, 7 DAYS THEN, STARTS BACK
     Dates: start: 202310

REACTIONS (3)
  - Death [Fatal]
  - Hypoacusis [Not Recovered/Not Resolved]
  - Tumour marker abnormal [Unknown]

NARRATIVE: CASE EVENT DATE: 20240206
